FAERS Safety Report 5237186-5 (Version None)
Quarter: 2007Q1

REPORT INFORMATION
  Report Type: 
  Country: None (occurrence: None)
  Receive Date: 20070213
  Receipt Date: 20070131
  Transmission Date: 20070707
  Serious: Yes (Other)
  Sender: FDA-Public Use
  Company Number: CO-JNJFOC-20031202551

PATIENT
  Age: 39 Year
  Sex: Female

DRUGS (3)
  1. INFLIXIMAB [Suspect]
     Indication: RHEUMATOID ARTHRITIS
     Route: 042
  2. NSAIDS [Concomitant]
     Dosage: WITHDRAWN 1 MONTH AFTER INFLIXIMAB INITIATION
  3. STEROIDS [Concomitant]
     Dosage: WITHDRAWN 1 MONTH AFTER INFLIXIMAB INITIATION

REACTIONS (6)
  - ANTINUCLEAR ANTIBODY POSITIVE [None]
  - CHOLESTASIS [None]
  - ENCEPHALOPATHY [None]
  - HEPATIC CIRRHOSIS [None]
  - HEPATIC FAILURE [None]
  - PERITONITIS BACTERIAL [None]
